FAERS Safety Report 10375510 (Version 1)
Quarter: 2014Q1

REPORT INFORMATION
  Report Type: Spontaneous
  Country: US (occurrence: None)
  Receive Date: 20140306
  Receipt Date: 20140306
  Transmission Date: 20141002
  Serious: Yes (Other)
  Sender: FDA-Public Use
  Company Number: 163-21880-13010636

PATIENT
  Age: 48 Year
  Sex: Male
  Weight: 90.72 kg

DRUGS (11)
  1. REVLIMID [Suspect]
     Indication: PLASMA CELL MYELOMA
     Route: 048
     Dates: start: 201112
  2. FENTANYL [Concomitant]
  3. FLEXERIL (CYCLOBENZAPRINE HYDROCHLORIDE) [Concomitant]
  4. LISINOPRIL/HCTZ (PRINZIDE) [Concomitant]
  5. NUCYNTA (TAPENTADOL HYDROCHLORIDE) [Concomitant]
  6. OXYCODONE/ACETAMINOPHEN (OXYCET) [Concomitant]
  7. PRILOSEC (OMEPRAZOLE) [Concomitant]
  8. VELCADE (BORTEZOMIB) [Concomitant]
  9. XANAX XR (ALPRAZOLAM) (TABLETS) [Concomitant]
  10. ZOLPIDEM TARTRATE [Concomitant]
  11. DECADRON (DEXAMETHASONE) [Concomitant]

REACTIONS (1)
  - Plasma cell myeloma [None]
